FAERS Safety Report 9746260 (Version 2)
Quarter: 2014Q1

REPORT INFORMATION
  Report Type: Spontaneous
  Country: JP (occurrence: JP)
  Receive Date: 20131211
  Receipt Date: 20140115
  Transmission Date: 20141002
  Serious: Yes (Hospitalization)
  Sender: FDA-Public Use
  Company Number: JP-EISAI INC-E2020-13279-SPO-JP

PATIENT
  Age: 64 Year
  Sex: Female

DRUGS (4)
  1. ARICEPT [Suspect]
     Indication: PRODUCT USED FOR UNKNOWN INDICATION
     Route: 048
     Dates: start: 20110422, end: 20110429
  2. ARICEPT [Suspect]
     Route: 048
     Dates: start: 20110430, end: 20120312
  3. ARICEPT [Suspect]
     Route: 048
     Dates: start: 20120313, end: 20131001
  4. MEMARY [Concomitant]
     Route: 048
     Dates: start: 20120821

REACTIONS (2)
  - Electrocardiogram QT prolonged [Recovered/Resolved]
  - Loss of consciousness [Recovered/Resolved]
